FAERS Safety Report 11156164 (Version 1)
Quarter: 2015Q2

REPORT INFORMATION
  Report Type: Spontaneous
  Country: GB (occurrence: GB)
  Receive Date: 20150602
  Receipt Date: 20150602
  Transmission Date: 20150821
  Serious: Yes (Life-Threatening, Other)
  Sender: FDA-Public Use
  Company Number: PHHY2015GB061771

PATIENT
  Age: 27 Year
  Sex: Male

DRUGS (2)
  1. EPILIM [Concomitant]
     Active Substance: VALPROATE SODIUM
     Indication: PRODUCT USED FOR UNKNOWN INDICATION
     Dosage: BEEN TAKING FOR 26 YEARS NOW WITHOUT ANY SERIOUS SIDE EFFECTS
     Route: 065
  2. LEVETIRACETAM. [Suspect]
     Active Substance: LEVETIRACETAM
     Indication: EPILEPSY
     Route: 065

REACTIONS (2)
  - Epilepsy [Not Recovered/Not Resolved]
  - Medication error [Unknown]
